FAERS Safety Report 16111257 (Version 1)
Quarter: 2019Q1

REPORT INFORMATION
  Report Type: Spontaneous
  Country: US (occurrence: US)
  Receive Date: 20190220
  Receipt Date: 20190220
  Transmission Date: 20190418
  Serious: No
  Sender: FDA-Public Use
  Company Number: None

PATIENT
  Age: 60 Year
  Sex: Female

DRUGS (1)
  1. BOTOX [Suspect]
     Active Substance: ONABOTULINUMTOXINA
     Dosage: STRENGTH 200 UNIT
     Dates: start: 201804, end: 201811

REACTIONS (2)
  - Injection site rash [None]
  - Rash [None]

NARRATIVE: CASE EVENT DATE: 20190108
